FAERS Safety Report 21007615 (Version 1)
Quarter: 2022Q2

REPORT INFORMATION
  Report Type: Spontaneous
  Country: SE (occurrence: SE)
  Receive Date: 20220626
  Receipt Date: 20220626
  Transmission Date: 20220721
  Serious: Yes (Life-Threatening, Hospitalization, Disabling, Other)
  Sender: FDA-Public Use
  Company Number: None

PATIENT
  Age: 67 Year
  Sex: Female
  Weight: 73 kg

DRUGS (6)
  1. REVLIMID [Suspect]
     Active Substance: LENALIDOMIDE
     Indication: Plasma cell myeloma in remission
     Route: 048
     Dates: start: 20180901, end: 20220223
  2. REVLIMID [Suspect]
     Active Substance: LENALIDOMIDE
     Indication: Autologous haematopoietic stem cell transplant
  3. PULMICORT TURBUHALER [Concomitant]
     Active Substance: BUDESONIDE
     Indication: Product used for unknown indication
     Dosage: 400 MIKROGRAM/DOS 1X2
     Route: 055
     Dates: start: 20170501
  4. SPIRIVA RESPIMAT [Concomitant]
     Active Substance: TIOTROPIUM BROMIDE
     Indication: Product used for unknown indication
     Dosage: 2,5 MIKROGRAM PER PUFF 2X1??FORM:INHALATIONSV?TSKA, L?SNING
     Route: 055
     Dates: start: 20170101
  5. CALCICHEW D3 CITRON [Concomitant]
     Indication: Product used for unknown indication
     Dosage: FORM: TUGGTABLETT
     Route: 048
     Dates: start: 20170108
  6. OMEPRAZOLE [Concomitant]
     Active Substance: OMEPRAZOLE
     Indication: Product used for unknown indication
     Dosage: FORM: ENTEROKAPSEL, HARD
     Route: 048
     Dates: start: 20170108

REACTIONS (1)
  - Malignant melanoma [Not Recovered/Not Resolved]

NARRATIVE: CASE EVENT DATE: 20211208
